FAERS Safety Report 9752559 (Version 1)
Quarter: 2013Q4

REPORT INFORMATION
  Report Type: Spontaneous
  Country: US (occurrence: US)
  Receive Date: 20131213
  Receipt Date: 20131213
  Transmission Date: 20140711
  Serious: No
  Sender: FDA-Public Use
  Company Number: US-JNJFOC-20131115051

PATIENT
  Sex: Female

DRUGS (1)
  1. INVEGA SUSTENNA [Suspect]
     Indication: SCHIZOPHRENIA
     Dosage: 234 MG, 117 MG AND 78 MG
     Route: 030
     Dates: start: 2012

REACTIONS (3)
  - Galactorrhoea [Unknown]
  - Amenorrhoea [Unknown]
  - Weight increased [Unknown]
